FAERS Safety Report 18583025 (Version 4)
Quarter: 2021Q3

REPORT INFORMATION
  Report Type: Other
  Country: CA (occurrence: CA)
  Receive Date: 20201206
  Receipt Date: 20210717
  Transmission Date: 20211014
  Serious: No
  Sender: FDA-Public Use
  Company Number: CA-ROCHE-2726461

PATIENT
  Age: 38 Year
  Sex: Male

DRUGS (1)
  1. OCREVUS [Suspect]
     Active Substance: OCRELIZUMAB
     Indication: RELAPSING-REMITTING MULTIPLE SCLEROSIS
     Dosage: 300 MG AT DAY 0 AND 14, THEN 600 MG EVERY 6 MONTH
     Route: 042
     Dates: start: 20191029

REACTIONS (1)
  - Herpes zoster [Not Recovered/Not Resolved]

NARRATIVE: CASE EVENT DATE: 202009
